FAERS Safety Report 20124451 (Version 2)
Quarter: 2022Q1

REPORT INFORMATION
  Report Type: Spontaneous
  Country: JP (occurrence: JP)
  Receive Date: 20211129
  Receipt Date: 20220104
  Transmission Date: 20220423
  Serious: Yes (Other)
  Sender: FDA-Public Use
  Company Number: JP-SYMBIO-202100457

PATIENT
  Age: 78 Year
  Sex: Female

DRUGS (3)
  1. BENDAMUSTINE HYDROCHLORIDE [Suspect]
     Active Substance: BENDAMUSTINE HYDROCHLORIDE
     Indication: Diffuse large B-cell lymphoma recurrent
     Dosage: (CYCLIC)
     Route: 041
     Dates: start: 20210721, end: 20210722
  2. RITUXAN [Suspect]
     Active Substance: RITUXIMAB
     Indication: Diffuse large B-cell lymphoma
     Dosage: (CYCLIC)
     Route: 041
     Dates: start: 20210720, end: 20210720
  3. POLIVY [Suspect]
     Active Substance: POLATUZUMAB VEDOTIN-PIIQ
     Indication: Diffuse large B-cell lymphoma
     Dosage: (CYCLIC)
     Route: 041
     Dates: start: 20210721, end: 20210721

REACTIONS (2)
  - Eastern Cooperative Oncology Group performance status worsened [Not Recovered/Not Resolved]
  - Off label use [Unknown]
